FAERS Safety Report 12257862 (Version 1)
Quarter: 2016Q2

REPORT INFORMATION
  Report Type: Spontaneous
  Country: DE (occurrence: DE)
  Receive Date: 20160412
  Receipt Date: 20160412
  Transmission Date: 20160815
  Serious: Yes (Other)
  Sender: FDA-Public Use
  Company Number: DE-PFIZER INC-2016200006

PATIENT
  Age: 24 Year
  Sex: Female
  Weight: 86.7 kg

DRUGS (3)
  1. IBUPROFEN. [Suspect]
     Active Substance: IBUPROFEN
     Dosage: 600 MG, UNK
  2. DICLOFENAC [Suspect]
     Active Substance: DICLOFENAC
     Dosage: 100 MG, UNK
  3. FLECAINIDE [Suspect]
     Active Substance: FLECAINIDE
     Indication: TACHYCARDIA FOETAL
     Dosage: 200 MG, UNK

REACTIONS (2)
  - Tubulointerstitial nephritis [Recovered/Resolved]
  - Overdose [Recovered/Resolved]
